FAERS Safety Report 25876823 (Version 1)
Quarter: 2025Q4

REPORT INFORMATION
  Report Type: Other
  Country: GB (occurrence: GB)
  Receive Date: 20251003
  Receipt Date: 20251003
  Transmission Date: 20260118
  Serious: Yes (Other)
  Sender: GLENMARK
  Company Number: GB-MHRA-TPP2447127C10611297YC1758544967333

PATIENT
  Age: 66 Year
  Sex: Female
  Weight: 107 kg

DRUGS (5)
  1. ROSUVASTATIN CALCIUM [Suspect]
     Active Substance: ROSUVASTATIN CALCIUM
     Indication: Agitated depression
     Dosage: UNK
     Route: 065
     Dates: start: 20250623, end: 20250918
  2. CITALOPRAM [Concomitant]
     Active Substance: CITALOPRAM
     Indication: Ill-defined disorder
     Dosage: QD (ONE DAILY)
     Route: 065
     Dates: start: 20240821
  3. NITROGLYCERIN [Concomitant]
     Active Substance: NITROGLYCERIN
     Indication: Ill-defined disorder
     Dosage: UNK (ONE PUFF UNDER THE TONGUE WHEN REQUIRED FOR THE...
     Route: 060
     Dates: start: 20240821
  4. EMPAGLIFLOZIN [Concomitant]
     Active Substance: EMPAGLIFLOZIN
     Indication: Ill-defined disorder
     Dosage: 1 DOSAGE FORM, QD (TAKE ONE TABLET DAILY)
     Route: 065
     Dates: start: 20240821
  5. ROSUVASTATIN [Concomitant]
     Active Substance: ROSUVASTATIN
     Indication: Ill-defined disorder
     Dosage: 1 DOSAGE FORM, QD (TAKE ONE TABLET ONCE DAILY)
     Route: 065
     Dates: start: 20250625, end: 20250917

REACTIONS (3)
  - Suicidal ideation [Unknown]
  - Depression [Recovered/Resolved]
  - Depressed mood [Unknown]

NARRATIVE: CASE EVENT DATE: 20250801
